FAERS Safety Report 25061380 (Version 2)
Quarter: 2025Q2

REPORT INFORMATION
  Report Type: Report from Study
  Country: US (occurrence: US)
  Receive Date: 20250311
  Receipt Date: 20250422
  Transmission Date: 20250717
  Serious: Yes (Other)
  Sender: ABBVIE
  Company Number: US-ABBVIE-6164222

PATIENT
  Age: 24 Year
  Sex: Female

DRUGS (1)
  1. HUMIRA [Suspect]
     Active Substance: ADALIMUMAB
     Indication: Product used for unknown indication
     Route: 058
     Dates: start: 20241101

REACTIONS (6)
  - Endometrial ablation [Recovered/Resolved]
  - Female sterilisation [Recovered/Resolved]
  - Arthralgia [Recovering/Resolving]
  - Joint noise [Unknown]
  - Joint stiffness [Unknown]
  - Axillary pain [Unknown]

NARRATIVE: CASE EVENT DATE: 20250217
